FAERS Safety Report 8762255 (Version 1)
Quarter: 2012Q4

REPORT INFORMATION
  Report Type: 
  Country: US (occurrence: US)
  Receive Date: 20120828
  Receipt Date: 20120828
  Transmission Date: 20130627
  Serious: Yes (Other)
  Sender: FDA-Public Use
  Company Number: US-GLAXOSMITHKLINE-A0936058A

PATIENT
  Sex: Female

DRUGS (5)
  1. BECONASE [Suspect]
     Indication: RHINITIS ALLERGIC
     Dosage: 2SPR Per day
     Route: 045
     Dates: end: 20110630
  2. ALLEGRA D [Concomitant]
  3. SYNTHROID [Concomitant]
  4. OMEPRAZOLE [Concomitant]
  5. EYE DROPS [Concomitant]

REACTIONS (1)
  - Intraocular pressure increased [Recovering/Resolving]
